FAERS Safety Report 9200132 (Version 1)
Quarter: 2013Q1

REPORT INFORMATION
  Report Type: Spontaneous
  Country: NL (occurrence: NL)
  Receive Date: 20130329
  Receipt Date: 20130329
  Transmission Date: 20140127
  Serious: Yes (Other)
  Sender: FDA-Public Use
  Company Number: NL-JNJFOC-20130315672

PATIENT
  Age: 69 Year
  Sex: Female

DRUGS (8)
  1. MICONAZOLE [Suspect]
     Indication: FUNGAL INFECTION
     Route: 003
  2. ACENOCOUMAROL [Interacting]
     Indication: PRODUCT USED FOR UNKNOWN INDICATION
     Route: 065
  3. METOPROLOL [Concomitant]
     Route: 065
  4. BISACODYL [Concomitant]
     Route: 065
  5. METFORMIN [Concomitant]
     Route: 065
  6. GLIMEPIRIDE [Concomitant]
     Route: 065
  7. FOSINOPRIL [Concomitant]
     Route: 065
  8. CHLORTHALIDONE [Concomitant]
     Route: 065

REACTIONS (2)
  - International normalised ratio increased [Unknown]
  - Drug interaction [Unknown]
